FAERS Safety Report 9905389 (Version 1)
Quarter: 2013Q2

REPORT INFORMATION
  Report Type: Spontaneous
  Country: US (occurrence: None)
  Receive Date: 20130305
  Receipt Date: 20130305
  Transmission Date: 20140414
  Serious: Yes (Hospitalization)
  Sender: FDA-Public Use
  Company Number: 163-21880-12041587

PATIENT
  Age: 66 Year
  Sex: Male

DRUGS (6)
  1. REVLIMID [Suspect]
     Indication: PLASMA CELL MYELOMA
     Dosage: 25 MG, DAILY X 21 DAYS, PO
     Route: 048
     Dates: start: 200812
  2. COUMADIN (WARFARIN SODIUM) (UNKNOWN) [Concomitant]
  3. DEXAMETHASONE (DEXAMETHASONE) (UNKNOWN) [Concomitant]
  4. PROTONIX (PANTOPRAZOLE SODIUM) (UNKNOWN) [Concomitant]
  5. TIKOSYN (DOFETILIDE) (UNKNOWN) [Concomitant]
  6. ZOCOR (SIMVASTATIN) (UNKNOWN) [Concomitant]

REACTIONS (1)
  - Cellulitis [None]
